FAERS Safety Report 9624220 (Version 2)
Quarter: 2013Q4

REPORT INFORMATION
  Report Type: Spontaneous
  Country: FR (occurrence: FR)
  Receive Date: 20131015
  Receipt Date: 20131015
  Transmission Date: 20140711
  Serious: Yes (Other)
  Sender: FDA-Public Use
  Company Number: FR-BRISTOL-MYERS SQUIBB COMPANY-19281963

PATIENT
  Age: 75 Year
  Sex: Female
  Weight: 61 kg

DRUGS (6)
  1. ORENCIA [Suspect]
     Indication: RHEUMATOID ARTHRITIS
     Dosage: RECEIVED 4 INFUSIONS OF ORENCIA
     Route: 042
     Dates: start: 20130703
  2. METHOTREXATE [Concomitant]
     Indication: RHEUMATOID ARTHRITIS
     Route: 058
     Dates: start: 1997
  3. CORTANCYL [Concomitant]
     Route: 048
  4. LEVOTHYROX [Concomitant]
     Indication: HYPOTHYROIDISM
     Route: 048
  5. OLMETEC [Concomitant]
     Route: 048
  6. FLUDEX [Concomitant]
     Route: 048

REACTIONS (1)
  - Rheumatoid nodule [Not Recovered/Not Resolved]
